FAERS Safety Report 16470686 (Version 1)
Quarter: 2019Q2

REPORT INFORMATION
  Report Type: Spontaneous
  Country: US (occurrence: US)
  Receive Date: 20190624
  Receipt Date: 20190624
  Transmission Date: 20190711
  Serious: No
  Sender: FDA-Public Use
  Company Number: US-CATALYST PHARMACEUTICALS, INC-2019CAT00091

PATIENT
  Age: 60 Year
  Sex: Female
  Weight: 50.79 kg

DRUGS (17)
  1. FIRDAPSE [Suspect]
     Active Substance: AMIFAMPRIDINE
     Indication: MYASTHENIC SYNDROME
     Dosage: 40 MG, 1X/DAY IN THE MORNING
     Route: 048
     Dates: start: 2018
  2. AMIFAMPRIDINE [Suspect]
     Active Substance: AMIFAMPRIDINE
     Dosage: 20 MG, 1X/DAY IN THE EVENING AT ABOUT 5:00 PM
  3. UNSPECIFIED VITAMINS [Concomitant]
     Active Substance: VITAMINS
  4. DRINK ALOE VERA [Concomitant]
  5. VITAMIN C [Concomitant]
     Active Substance: ASCORBIC ACID
  6. PREDNISONE. [Concomitant]
     Active Substance: PREDNISONE
     Dosage: UNK ^WEANING OFF^
  7. PREDNISONE. [Concomitant]
     Active Substance: PREDNISONE
     Dosage: 1 MG, 1X/DAY
  8. FIRDAPSE [Suspect]
     Active Substance: AMIFAMPRIDINE
     Dosage: UNK, AS NEEDED TO A TOTAL DAILY DOSE OF 100 MG
     Route: 048
     Dates: start: 2018
  9. VITAMIN D [Concomitant]
     Active Substance: VITAMIN D NOS
  10. VITAMIN B [Concomitant]
     Active Substance: VITAMIN B
  11. OMEGA 3 [Concomitant]
     Active Substance: OMEGA-3 FATTY ACIDS
  12. FIRDAPSE [Suspect]
     Active Substance: AMIFAMPRIDINE
     Dosage: 20 MG, 1X/DAY AT 1:00 PM AFTER LUNCH
     Route: 048
     Dates: start: 2018
  13. TURMERIC [Concomitant]
     Active Substance: HERBALS\TURMERIC
  14. AMIFAMPRIDINE [Suspect]
     Active Substance: AMIFAMPRIDINE
     Indication: MYASTHENIC SYNDROME
     Dosage: 40 MG, 2X/DAY IN THE MORNING AND AT NOON TO 1:00 PM
  15. FIRDAPSE [Suspect]
     Active Substance: AMIFAMPRIDINE
     Dosage: 10-20 MG AFTER BREAKFAST
     Route: 048
     Dates: start: 2018
  16. MESTINON [Concomitant]
     Active Substance: PYRIDOSTIGMINE BROMIDE
     Dosage: 60 MG, 1X/DAY IN THE MORNING
  17. GARLIC SUPPLEMENT [Concomitant]

REACTIONS (17)
  - Therapeutic product effect incomplete [Not Recovered/Not Resolved]
  - Gait inability [Recovered/Resolved]
  - Unevaluable event [Unknown]
  - Weight decreased [Not Recovered/Not Resolved]
  - Burning sensation [Not Recovered/Not Resolved]
  - Therapeutic response shortened [Not Recovered/Not Resolved]
  - Chills [Recovered/Resolved]
  - Food interaction [Not Recovered/Not Resolved]
  - Headache [Not Recovered/Not Resolved]
  - Therapeutic product effect delayed [Not Recovered/Not Resolved]
  - Therapeutic product effect increased [Not Recovered/Not Resolved]
  - Influenza like illness [Not Recovered/Not Resolved]
  - Rhinorrhoea [Recovered/Resolved]
  - Paraesthesia [Not Recovered/Not Resolved]
  - Asthenia [Not Recovered/Not Resolved]
  - Decreased appetite [Not Recovered/Not Resolved]
  - Intentional overdose [Not Recovered/Not Resolved]

NARRATIVE: CASE EVENT DATE: 201903
